FAERS Safety Report 9297600 (Version 2)
Quarter: 2013Q4

REPORT INFORMATION
  Report Type: Report from Study
  Country: CA (occurrence: CA)
  Receive Date: 20130520
  Receipt Date: 20131010
  Transmission Date: 20140711
  Serious: Yes (Disabling)
  Sender: FDA-Public Use
  Company Number: PHHY2012CA070351

PATIENT
  Age: 40 Year
  Sex: Female

DRUGS (3)
  1. EXTAVIA [Suspect]
     Indication: RELAPSING-REMITTING MULTIPLE SCLEROSIS
     Dosage: 8 UG, QOD
     Route: 058
     Dates: start: 20120704
  2. EXTAVIA [Suspect]
     Dosage: 0.5 MG, UNK
     Route: 058
     Dates: end: 20130801
  3. ADVIL PM [Concomitant]
     Indication: PAIN
     Dosage: UNK UKN, UNK

REACTIONS (16)
  - Multiple sclerosis relapse [Unknown]
  - Demyelination [Unknown]
  - Central nervous system lesion [Unknown]
  - Neuralgia [Unknown]
  - Hyperreflexia [Unknown]
  - Allodynia [Unknown]
  - Paraesthesia [Unknown]
  - Vision blurred [Unknown]
  - Visual acuity reduced [Unknown]
  - Myalgia [Unknown]
  - Micturition urgency [Unknown]
  - Drug intolerance [Unknown]
  - Fear [Unknown]
  - Urinary incontinence [Unknown]
  - Hyperhidrosis [Unknown]
  - Influenza like illness [Not Recovered/Not Resolved]
